FAERS Safety Report 22242183 (Version 1)
Quarter: 2023Q2

REPORT INFORMATION
  Report Type: Report from Study
  Country: CA (occurrence: CA)
  Receive Date: 20230422
  Receipt Date: 20230422
  Transmission Date: 20230721
  Serious: Yes (Other)
  Sender: FDA-Public Use
  Company Number: CA-AMGEN-CANSL2023029939

PATIENT
  Age: 39 Year
  Sex: Female
  Weight: 106 kg

DRUGS (1)
  1. AVSOLA [Suspect]
     Active Substance: INFLIXIMAB-AXXQ
     Indication: Crohn^s disease
     Dosage: 800 MILLIGRAM, Q6WK
     Route: 042
     Dates: start: 20220203

REACTIONS (7)
  - Choking [Unknown]
  - COVID-19 [Recovered/Resolved]
  - Off label use [Unknown]
  - Headache [Unknown]
  - Throat irritation [Unknown]
  - Dysphonia [Unknown]
  - Sinusitis [Unknown]

NARRATIVE: CASE EVENT DATE: 20230214
